FAERS Safety Report 13845681 (Version 1)
Quarter: 2017Q3

REPORT INFORMATION
  Report Type: Spontaneous
  Country: US (occurrence: US)
  Receive Date: 20170808
  Receipt Date: 20170808
  Transmission Date: 20171127
  Serious: No
  Sender: FDA-Public Use
  Company Number: US-ROCHE-798829

PATIENT
  Sex: Female

DRUGS (2)
  1. BONIVA [Suspect]
     Active Substance: IBANDRONATE SODIUM
     Indication: BREAST CANCER
     Dosage: FOR 8 YEARS
     Route: 065
  2. ACTONEL [Concomitant]
     Active Substance: RISEDRONATE SODIUM
     Route: 065

REACTIONS (4)
  - Gastrointestinal disorder [Unknown]
  - Jaw disorder [Unknown]
  - Muscle spasms [Unknown]
  - Metabolic disorder [Unknown]
